FAERS Safety Report 4757881-1 (Version None)
Quarter: 2005Q3

REPORT INFORMATION
  Report Type: 
  Country: None (occurrence: None)
  Receive Date: 20050831
  Receipt Date: 20050824
  Transmission Date: 20060218
  Serious: Yes (Other)
  Sender: FDA-Public Use
  Company Number: BW-BRISTOL-MYERS SQUIBB COMPANY-13091335

PATIENT
  Age: 28 Year
  Sex: Female

DRUGS (3)
  1. EFAVIRENZ [Suspect]
  2. NEVIRAPINE [Suspect]
  3. COMBIVIR [Suspect]

REACTIONS (1)
  - ANAEMIA [None]
